FAERS Safety Report 17851731 (Version 1)
Quarter: 2020Q2

REPORT INFORMATION
  Report Type: Spontaneous
  Country: US (occurrence: US)
  Receive Date: 20200602
  Receipt Date: 20200602
  Transmission Date: 20200714
  Serious: Yes (Other)
  Sender: FDA-Public Use
  Company Number: US-BAYER-2020-098400

PATIENT
  Age: 72 Year
  Sex: Female
  Weight: 56.7 kg

DRUGS (3)
  1. BAYER ASPIRIN [Suspect]
     Active Substance: ASPIRIN
     Dosage: UNK
  2. XELJANZ [Suspect]
     Active Substance: TOFACITINIB CITRATE
     Dosage: 5 MG
     Route: 048
     Dates: start: 2013
  3. IBUPROFEN. [Suspect]
     Active Substance: IBUPROFEN
     Dosage: 600 MG
     Route: 048

REACTIONS (9)
  - Pruritus [Unknown]
  - Gait disturbance [Unknown]
  - Blood pressure increased [Unknown]
  - Feeling abnormal [Unknown]
  - Pain [Unknown]
  - Skin burning sensation [Unknown]
  - Fine motor skill dysfunction [Unknown]
  - Heart rate increased [Unknown]
  - Peripheral swelling [Unknown]

NARRATIVE: CASE EVENT DATE: 20200519
